FAERS Safety Report 5805761-2 (Version None)
Quarter: 2008Q3

REPORT INFORMATION
  Report Type: 
  Country: None (occurrence: None)
  Receive Date: 20080708
  Receipt Date: 20080708
  Transmission Date: 20090109
  Serious: Yes (Other)
  Sender: FDA-Public Use
  Company Number: None

PATIENT
  Age: 61 Year
  Sex: Male
  Weight: 115.8 kg

DRUGS (1)
  1. SULFAMETHOXAZOLE AND TRIMETHOPRIM [Suspect]
     Indication: SINUSITIS
     Dosage: 1 TAB BID PO
     Route: 048
     Dates: start: 20080418, end: 20080419

REACTIONS (5)
  - EYE SWELLING [None]
  - PARAESTHESIA [None]
  - PRURITUS [None]
  - RASH [None]
  - URTICARIA [None]
